FAERS Safety Report 19983285 (Version 2)
Quarter: 2021Q4

REPORT INFORMATION
  Report Type: Spontaneous
  Country: BE (occurrence: None)
  Receive Date: 20211021
  Receipt Date: 20211112
  Transmission Date: 20220303
  Serious: Yes (Death, Life-Threatening, Hospitalization, Other)
  Sender: FDA-Public Use
  Company Number: 2021A757592

PATIENT
  Age: 26602 Day
  Sex: Male
  Weight: 63 kg

DRUGS (7)
  1. IMFINZI [Suspect]
     Active Substance: DURVALUMAB
     Indication: Non-small cell lung cancer
     Route: 041
     Dates: start: 20210816, end: 20210816
  2. GEMCITABINE/CARBOPLATIN [Concomitant]
     Route: 065
     Dates: start: 20210319
  3. PANTOMED [Concomitant]
     Indication: Gastrooesophageal reflux disease
     Dosage: 40.0MG UNKNOWN
     Route: 048
     Dates: start: 20210127
  4. SIMVASTATIN [Concomitant]
     Active Substance: SIMVASTATIN
     Indication: Blood cholesterol increased
     Route: 048
  5. DAFLON [Concomitant]
     Indication: Peripheral vascular disorder
     Route: 048
  6. ALLOPURINOL [Concomitant]
     Active Substance: ALLOPURINOL
     Indication: Gout
     Route: 048
  7. ZOLPIDEM [Concomitant]
     Active Substance: ZOLPIDEM TARTRATE
     Indication: African trypanosomiasis
     Route: 048
     Dates: start: 202101

REACTIONS (5)
  - Myositis [Fatal]
  - Myasthenia gravis [Fatal]
  - Septic shock [Fatal]
  - Respiratory failure [Unknown]
  - Pneumonia [Unknown]

NARRATIVE: CASE EVENT DATE: 20210929
